FAERS Safety Report 16472277 (Version 1)
Quarter: 2019Q2

REPORT INFORMATION
  Report Type: Spontaneous
  Country: US (occurrence: US)
  Receive Date: 20190625
  Receipt Date: 20190625
  Transmission Date: 20190711
  Serious: Yes (Other)
  Sender: FDA-Public Use
  Company Number: US-ALVOGEN-2019-ALVOGEN-100301

PATIENT
  Sex: Female
  Weight: 64.41 kg

DRUGS (3)
  1. LISINOPRIL. [Suspect]
     Active Substance: LISINOPRIL
     Indication: BLOOD PRESSURE ABNORMAL
  2. TAGRISSO [Suspect]
     Active Substance: OSIMERTINIB
     Indication: SMALL CELL LUNG CANCER
     Route: 048
     Dates: start: 201812, end: 201906
  3. LISINOPRIL. [Suspect]
     Active Substance: LISINOPRIL
     Indication: BLOOD PRESSURE ABNORMAL

REACTIONS (8)
  - Depressed level of consciousness [Recovering/Resolving]
  - Confusional state [Recovering/Resolving]
  - Asthenia [Recovering/Resolving]
  - Rash [Unknown]
  - Dry eye [Unknown]
  - Depression [Unknown]
  - Lung neoplasm malignant [Not Recovered/Not Resolved]
  - Insomnia [Unknown]
